FAERS Safety Report 13177017 (Version 1)
Quarter: 2017Q1

REPORT INFORMATION
  Report Type: Report from Study
  Country: US (occurrence: US)
  Receive Date: 20170201
  Receipt Date: 20170201
  Transmission Date: 20170428
  Serious: No
  Sender: FDA-Public Use
  Company Number: US-EXELIXIS-CABO-16006892

PATIENT
  Sex: Female

DRUGS (1)
  1. CABOMETYX [Suspect]
     Active Substance: CABOZANTINIB S-MALATE
     Indication: BONE CANCER
     Dosage: 60 MG, QD
     Route: 048
     Dates: start: 20160715, end: 20160812

REACTIONS (6)
  - Abdominal pain [Unknown]
  - Off label use [Unknown]
  - Hypertension [Unknown]
  - Pain of skin [Unknown]
  - Nausea [Unknown]
  - Erythema [Unknown]
